FAERS Safety Report 23703159 (Version 1)
Quarter: 2024Q2

REPORT INFORMATION
  Report Type: Spontaneous
  Country: US (occurrence: None)
  Receive Date: 20240403
  Receipt Date: 20240403
  Transmission Date: 20240716
  Serious: No
  Sender: FDA-Public Use
  Company Number: None

PATIENT
  Sex: Male

DRUGS (10)
  1. MYCOPHENOLIC ACID [Suspect]
     Active Substance: MYCOPHENOLIC ACID
     Indication: Pancreas transplant
     Dosage: OTHER QUANTITY : 3 CAPSULES AM + PM;?FREQUENCY : DAILY;?
     Route: 048
     Dates: start: 20211228
  2. ALBUTEROL [Concomitant]
     Active Substance: ALBUTEROL
  3. ALPRAZOLAM [Concomitant]
     Active Substance: ALPRAZOLAM
  4. AMPHET/DEXTR [Concomitant]
  5. AZITHROMYCIN [Concomitant]
     Active Substance: AZITHROMYCIN
  6. BENZONATATE [Concomitant]
     Active Substance: BENZONATATE
  7. CARVEDILOL [Concomitant]
     Active Substance: CARVEDILOL
  8. DEXAMETH PHO [Concomitant]
  9. ACETAMINOPHEN\HYDROCODONE [Concomitant]
     Active Substance: ACETAMINOPHEN\HYDROCODONE
  10. KENALOG-40 [Concomitant]
     Active Substance: TRIAMCINOLONE ACETONIDE

REACTIONS (2)
  - Cerebrovascular accident [None]
  - Therapy interrupted [None]
